FAERS Safety Report 5980010-3 (Version None)
Quarter: 2008Q4

REPORT INFORMATION
  Report Type: 
  Country: None (occurrence: None)
  Receive Date: 20081205
  Receipt Date: 20081126
  Transmission Date: 20090506
  Serious: Yes (Death, Other)
  Sender: FDA-Public Use
  Company Number: BR-JNJFOC-20081100650

PATIENT
  Sex: Male

DRUGS (1)
  1. ORTHOCLONE [Suspect]
     Indication: TRANSPLANT REJECTION

REACTIONS (4)
  - CONVULSION [None]
  - DEATH [None]
  - HAEMORRHAGIC CEREBRAL INFARCTION [None]
  - HEAD INJURY [None]
